FAERS Safety Report 24687415 (Version 1)
Quarter: 2024Q4

REPORT INFORMATION
  Report Type: Spontaneous
  Country: IT (occurrence: IT)
  Receive Date: 20241202
  Receipt Date: 20241202
  Transmission Date: 20250115
  Serious: Yes (Hospitalization, Other)
  Sender: ELI LILLY AND COMPANY
  Company Number: None

PATIENT
  Age: 64 Year
  Sex: Female
  Weight: 65 kg

DRUGS (7)
  1. OLUMIANT [Suspect]
     Active Substance: BARICITINIB
     Indication: Rheumatoid arthritis
     Dosage: 4 MG, DAILY
     Route: 048
     Dates: start: 202108, end: 20241006
  2. LUCEN [ESOMEPRAZOLE MAGNESIUM] [Concomitant]
     Indication: Gastritis
  3. AUROZEB [Concomitant]
     Indication: Hypercholesterolaemia
  4. RAMIPRIL [Concomitant]
     Active Substance: RAMIPRIL
     Indication: Hypertension
  5. NODIGAP [Concomitant]
     Indication: Osteoporosis
  6. ACLASTA [Concomitant]
     Active Substance: ZOLEDRONIC ACID
     Indication: Osteoporosis
     Dosage: 5 MG, OTHER (ONCE A YEAR)
     Route: 042
     Dates: start: 202309
  7. NEBIVOLOL HYDROCHLORIDE [Concomitant]
     Active Substance: NEBIVOLOL HYDROCHLORIDE
     Indication: Hypertension
     Route: 048
     Dates: start: 2018

REACTIONS (3)
  - Cerebrovascular accident [Recovered/Resolved]
  - Cardiac aneurysm [Unknown]
  - Right-to-left cardiac shunt [Unknown]

NARRATIVE: CASE EVENT DATE: 20241006
